FAERS Safety Report 9764622 (Version 1)
Quarter: 2013Q4

REPORT INFORMATION
  Report Type: Spontaneous
  Country: US (occurrence: US)
  Receive Date: 20131217
  Receipt Date: 20131217
  Transmission Date: 20140711
  Serious: Yes (Hospitalization, Other)
  Sender: FDA-Public Use
  Company Number: US-AMGEN-USASP2013087709

PATIENT
  Age: 60 Year
  Sex: Male

DRUGS (1)
  1. SENSIPAR [Suspect]
     Indication: PRODUCT USED FOR UNKNOWN INDICATION
     Route: 065

REACTIONS (4)
  - Encephalopathy [Unknown]
  - Pneumonia [Unknown]
  - Gastrostomy [Unknown]
  - Convulsion [Unknown]
